FAERS Safety Report 20710317 (Version 1)
Quarter: 2022Q2

REPORT INFORMATION
  Report Type: Spontaneous
  Country: GR (occurrence: GR)
  Receive Date: 20220414
  Receipt Date: 20220414
  Transmission Date: 20220721
  Serious: Yes (Other)
  Sender: FDA-Public Use
  Company Number: GR-ELI_LILLY_AND_COMPANY-GR202204004085

PATIENT
  Age: 69 Year
  Sex: Male

DRUGS (5)
  1. TRULICITY [Suspect]
     Active Substance: DULAGLUTIDE
     Indication: Diabetes mellitus
     Dosage: 1.5 MG, WEEKLY (1/W)
     Route: 058
     Dates: start: 20220328
  2. TOUJEO [Concomitant]
     Active Substance: INSULIN GLARGINE
     Indication: Diabetes mellitus
     Dosage: UNK UNK, UNKNOWN
  3. EXFORGE [Concomitant]
     Active Substance: AMLODIPINE BESYLATE\VALSARTAN
     Indication: Blood pressure abnormal
     Dosage: 2 DOSAGE FORM, DAILY
  4. VENETOCLAX [Concomitant]
     Active Substance: VENETOCLAX
     Indication: Lymphocytic leukaemia
     Dosage: 2 DOSAGE FORM, DAILY
  5. REPATHA [Concomitant]
     Active Substance: EVOLOCUMAB
     Indication: Blood cholesterol abnormal
     Dosage: 1 DOSAGE FORM, DAILY

REACTIONS (4)
  - Loss of consciousness [Recovered/Resolved]
  - Dizziness [Unknown]
  - Abdominal pain upper [Unknown]
  - Blood glucose decreased [Recovering/Resolving]

NARRATIVE: CASE EVENT DATE: 20220405
